FAERS Safety Report 5119734-9 (Version None)
Quarter: 2006Q4

REPORT INFORMATION
  Report Type: 
  Country: None (occurrence: None)
  Receive Date: 20061003
  Receipt Date: 20060908
  Transmission Date: 20070319
  Serious: Yes (Other)
  Sender: FDA-Public Use
  Company Number: FR-SANOFI-SYNTHELABO-F01200601990

PATIENT
  Sex: Female

DRUGS (3)
  1. PROFENID [Suspect]
     Dosage: DOSE NOT SPECIFIED
  2. LOVENOX [Suspect]
     Dosage: DOSE NOT SPECIFIED
  3. OXALIPLATIN [Suspect]
     Indication: OVARIAN CANCER
     Route: 042
     Dates: start: 20060816, end: 20060816

REACTIONS (1)
  - PERITONEAL HAEMORRHAGE [None]
